FAERS Safety Report 7026203-8 (Version None)
Quarter: 2010Q4

REPORT INFORMATION
  Report Type: 
  Country: None (occurrence: None)
  Receive Date: 20101004
  Receipt Date: 20100923
  Transmission Date: 20110411
  Serious: No
  Sender: FDA-Public Use
  Company Number: 2010BI004444

PATIENT
  Age: 49 Year
  Sex: Male

DRUGS (4)
  1. TYSABRI [Suspect]
     Indication: MULTIPLE SCLEROSIS
     Route: 042
     Dates: start: 20071102
  2. TYSABRI [Suspect]
     Indication: FATIGUE
     Route: 042
     Dates: start: 20071102
  3. TYSABRI [Suspect]
     Indication: GAIT DISTURBANCE
     Route: 042
     Dates: start: 20071102
  4. AVONEX [Concomitant]
     Indication: MULTIPLE SCLEROSIS
     Route: 030

REACTIONS (4)
  - COGNITIVE DISORDER [None]
  - FATIGUE [None]
  - GAIT DISTURBANCE [None]
  - STRESS [None]
